FAERS Safety Report 25025317 (Version 1)
Quarter: 2025Q1

REPORT INFORMATION
  Report Type: Spontaneous
  Country: IT (occurrence: IT)
  Receive Date: 20250228
  Receipt Date: 20250228
  Transmission Date: 20250409
  Serious: Yes (Death)
  Sender: PFIZER
  Company Number: IT-PFIZER INC-202500045534

PATIENT
  Age: 53 Year
  Sex: Female

DRUGS (1)
  1. ELREXFIO [Suspect]
     Active Substance: ELRANATAMAB-BCMM

REACTIONS (1)
  - Brain oedema [Fatal]
